FAERS Safety Report 7888479-4 (Version None)
Quarter: 2011Q4

REPORT INFORMATION
  Report Type: 
  Country: None (occurrence: None)
  Receive Date: 20111103
  Receipt Date: 20111028
  Transmission Date: 20120403
  Serious: Yes (Hospitalization)
  Sender: FDA-Public Use
  Company Number: PHHY2011VE95988

PATIENT
  Sex: Female

DRUGS (6)
  1. ZOLEDRONOC ACID [Suspect]
     Dosage: 5 MG/100 ML ONCE A YEAR
     Route: 042
     Dates: start: 20080701
  2. ZOLEDRONOC ACID [Suspect]
     Dosage: 5 MG/100 ML ONCE A YEAR
     Route: 042
     Dates: start: 20090801
  3. VITAMIN E [Concomitant]
     Dosage: ONE PILL ONCE IN A WHILE
  4. CALCIUM [Concomitant]
     Dosage: UNK UKN, UNK
  5. ZOLEDRONOC ACID [Suspect]
     Dosage: 5 MG/100 ML ONCE A YEAR
     Route: 042
     Dates: start: 20100801
  6. VITAMIN D [Concomitant]
     Dosage: ONE PILL ONCE IN A WHILE

REACTIONS (3)
  - HAND FRACTURE [None]
  - FEMUR FRACTURE [None]
  - FALL [None]
